FAERS Safety Report 4614796-7 (Version None)
Quarter: 2005Q1

REPORT INFORMATION
  Report Type: 
  Country: None (occurrence: None)
  Receive Date: 20050322
  Receipt Date: 20050310
  Transmission Date: 20050727
  Serious: Yes (Hospitalization)
  Sender: FDA-Public Use
  Company Number: 200512181GDDC

PATIENT
  Age: 68 Year
  Sex: Male

DRUGS (12)
  1. TRIATEC [Suspect]
     Dosage: DOSE: UNK
  2. LASILIX [Suspect]
     Dosage: DOSE: UNK
  3. ZOLADEX [Suspect]
     Indication: PROSTATE CANCER
     Dates: start: 20030701
  4. OMEPRAZOLE [Suspect]
     Route: 048
  5. FONZYLANE [Suspect]
     Route: 048
     Dates: start: 20030701
  6. XATRAL [Suspect]
     Route: 048
     Dates: start: 20030701
  7. ELISOR [Suspect]
     Route: 048
     Dates: start: 20030701
  8. KREDEX [Suspect]
     Route: 048
     Dates: start: 20030701
  9. PLAVIX [Suspect]
     Route: 048
  10. ASPEGIC 1000 [Suspect]
  11. LIBRAX [Suspect]
  12. DIFFU K [Suspect]

REACTIONS (2)
  - ARTERIOSPASM CORONARY [None]
  - MYOCARDIAL INFARCTION [None]
